FAERS Safety Report 4510260-4 (Version None)
Quarter: 2004Q4

REPORT INFORMATION
  Report Type: 
  Country: None (occurrence: None)
  Receive Date: 20041119
  Receipt Date: 20041102
  Transmission Date: 20050328
  Serious: Yes (Death, Hospitalization)
  Sender: FDA-Public Use
  Company Number: EWC041141283

PATIENT
  Age: 48 Year
  Sex: Female
  Weight: 45 kg

DRUGS (3)
  1. XIGRIS [Suspect]
     Indication: DISSEMINATED INTRAVASCULAR COAGULATION
     Dates: start: 20040724, end: 20040725
  2. KYBERNIN P (ANTITHROMBIN III) [Concomitant]
  3. KONAKION [Concomitant]

REACTIONS (3)
  - DISSEMINATED INTRAVASCULAR COAGULATION [None]
  - DRUG INTERACTION [None]
  - HAEMORRHAGE INTRACRANIAL [None]
